FAERS Safety Report 5354318-9 (Version None)
Quarter: 2007Q2

REPORT INFORMATION
  Report Type: 
  Country: None (occurrence: None)
  Receive Date: 20070521
  Receipt Date: 20070122
  Transmission Date: 20071010
  Serious: No
  Sender: FDA-Public Use
  Company Number: WAES 0701USA03698

PATIENT
  Age: 75 Year
  Sex: Male

DRUGS (12)
  1. JANUVIA [Suspect]
     Indication: DIABETES MELLITUS
     Dosage: 50 MG/DAILY/PO
     Route: 048
     Dates: start: 20061203
  2. AMARYL [Concomitant]
  3. AVODART [Concomitant]
  4. HYTRIN [Concomitant]
  5. LASIX [Concomitant]
  6. LIPITOR [Concomitant]
  7. NIASPAN [Concomitant]
  8. OCUVITE [Concomitant]
  9. PROCARDIA [Concomitant]
  10. ASPIRIN [Concomitant]
  11. ATENOLOL [Concomitant]
  12. LISINOPRIL [Concomitant]

REACTIONS (2)
  - BLOOD CREATININE INCREASED [None]
  - BLOOD UREA INCREASED [None]
